FAERS Safety Report 4359730-2 (Version None)
Quarter: 2004Q2

REPORT INFORMATION
  Report Type: 
  Country: None (occurrence: None)
  Receive Date: 20040518
  Receipt Date: 20040407
  Transmission Date: 20050107
  Serious: Yes (Hospitalization, Disabling)
  Sender: FDA-Public Use
  Company Number: PL-BRISTOL-MYERS SQUIBB COMPANY-12553681

PATIENT
  Age: 58 Year
  Sex: Male
  Weight: 61 kg

DRUGS (9)
  1. CISPLATIN [Suspect]
     Indication: BLADDER CANCER
     Dosage: THERAPY: 21-JAN-2004 TO 04-MAR-2004; CUM DOSE 388 MG;LAST TREATMENT DAY: 26-MAR-2004
     Route: 042
     Dates: start: 20040304, end: 20040304
  2. PACLITAXEL [Suspect]
     Indication: BLADDER CANCER
     Dosage: THERAPY DATES: 21-JAN-2004 TO 26-MAR-2004; CUMULATIVE DOSE 1026 MG
     Route: 042
     Dates: start: 20040326, end: 20040326
  3. GEMCITABINE [Suspect]
     Indication: BLADDER CANCER
     Dosage: THERAPY DATES: 21-JAN-2004 TO 26-MAR-2004; CUMULATIVE DOSE 13000 MG
     Route: 042
     Dates: start: 20040326, end: 20040326
  4. ONDANSETRON [Concomitant]
     Indication: PREMEDICATION
     Route: 048
     Dates: start: 20040121, end: 20040401
  5. NADROPARIN CALCIUM [Concomitant]
     Route: 058
     Dates: start: 20040303
  6. MEGESTROL [Concomitant]
     Route: 048
     Dates: start: 20040303, end: 20040401
  7. CIPROFLOXACIN HCL [Concomitant]
     Route: 048
     Dates: start: 20040329, end: 20040401
  8. EPOETIN ALFA [Concomitant]
     Route: 058
     Dates: start: 20040329, end: 20040402
  9. FERROUS SULFATE TAB [Concomitant]
     Dates: start: 20040325, end: 20040401

REACTIONS (1)
  - GASTROINTESTINAL PERFORATION [None]
